FAERS Safety Report 4616837-X (Version None)
Quarter: 2005Q1

REPORT INFORMATION
  Report Type: 
  Country: None (occurrence: None)
  Receive Date: 20050318
  Receipt Date: 20050225
  Transmission Date: 20050727
  Serious: No
  Sender: FDA-Public Use
  Company Number: PHBS2004TW17233

PATIENT
  Sex: Female

DRUGS (1)
  1. VERTEPORFIN [Suspect]
     Indication: MACULAR DEGENERATION
     Dosage: 9.8 MG
     Route: 042
     Dates: start: 20041116, end: 20041116

REACTIONS (3)
  - POST PROCEDURAL COMPLICATION [None]
  - RETINAL HAEMORRHAGE [None]
  - VITREOUS HAEMORRHAGE [None]
